FAERS Safety Report 16425855 (Version 1)
Quarter: 2019Q2

REPORT INFORMATION
  Report Type: Spontaneous
  Country: GB (occurrence: GB)
  Receive Date: 20190613
  Receipt Date: 20190613
  Transmission Date: 20190711
  Serious: Yes (Other)
  Sender: FDA-Public Use
  Company Number: GB-MYLANLABS-2019M1054163

PATIENT
  Age: 21 Year
  Sex: Female
  Weight: 110 kg

DRUGS (2)
  1. LEVETIRACETAM. [Suspect]
     Active Substance: LEVETIRACETAM
     Dosage: 250 MILLIGRAM, QD (MORNING)
     Route: 048
     Dates: start: 20181022, end: 20181115
  2. LEVETIRACETAM. [Suspect]
     Active Substance: LEVETIRACETAM
     Indication: IDIOPATHIC GENERALISED EPILEPSY
     Dosage: 500 MILLIGRAM, QD (NIGHT)
     Route: 048
     Dates: start: 20181022, end: 20181115

REACTIONS (7)
  - Anxiety [Unknown]
  - Product substitution issue [Unknown]
  - Psychotic disorder [Recovered/Resolved]
  - Abnormal dreams [Recovered/Resolved]
  - Confusional state [Recovered/Resolved]
  - Nightmare [Recovered/Resolved]
  - Hallucination [Recovered/Resolved]
